FAERS Safety Report 7200314-6 (Version None)
Quarter: 2010Q4

REPORT INFORMATION
  Report Type: 
  Country: None (occurrence: None)
  Receive Date: 20101228
  Receipt Date: 20101222
  Transmission Date: 20110411
  Serious: Yes (Hospitalization)
  Sender: FDA-Public Use
  Company Number: B0690532A

PATIENT
  Sex: Male

DRUGS (10)
  1. AUGMENTIN '125' [Suspect]
     Indication: PRODUCT USED FOR UNKNOWN INDICATION
     Dosage: 3G UNKNOWN
     Route: 048
     Dates: start: 20100309, end: 20100330
  2. FLUCONAZOLE [Suspect]
     Indication: PRODUCT USED FOR UNKNOWN INDICATION
     Dosage: 200MG TWICE PER DAY
     Route: 048
     Dates: start: 20100309, end: 20100330
  3. NEXIUM [Suspect]
     Indication: PRODUCT USED FOR UNKNOWN INDICATION
     Dosage: 20MG PER DAY
     Route: 048
     Dates: start: 20100201, end: 20100330
  4. ORACILLINE [Suspect]
     Indication: PRODUCT USED FOR UNKNOWN INDICATION
     Dosage: 1UNIT PER DAY
     Route: 048
     Dates: start: 20090901, end: 20100330
  5. VALACYCLOVIR HYDROCHLORIDE (VALTREX) [Concomitant]
     Indication: PRODUCT USED FOR UNKNOWN INDICATION
     Dosage: 500MG TWICE PER DAY
     Route: 048
     Dates: start: 20100309
  6. VFEND [Concomitant]
     Indication: PRODUCT USED FOR UNKNOWN INDICATION
     Route: 065
     Dates: start: 20100325, end: 20100330
  7. VANCOMYCIN HCL [Concomitant]
     Indication: FEBRILE BONE MARROW APLASIA
     Route: 065
     Dates: start: 20100321, end: 20100327
  8. CIPROFLOXACIN HYDROCHLORIDE [Concomitant]
     Indication: FEBRILE BONE MARROW APLASIA
     Route: 065
     Dates: start: 20100321, end: 20100327
  9. TAZOCILLINE [Concomitant]
     Indication: FEBRILE BONE MARROW APLASIA
     Route: 065
     Dates: start: 20100321, end: 20100327
  10. IMIPENEM AND CILASTATIN [Concomitant]
     Indication: FEBRILE BONE MARROW APLASIA
     Route: 065
     Dates: start: 20100321, end: 20100327

REACTIONS (5)
  - CONJUNCTIVITIS INFECTIVE [None]
  - ERYTHEMA MULTIFORME [None]
  - SKIN TEST NEGATIVE [None]
  - STEVENS-JOHNSON SYNDROME [None]
  - TOXIC SKIN ERUPTION [None]
